FAERS Safety Report 6420630-5 (Version None)
Quarter: 2009Q4

REPORT INFORMATION
  Report Type: 
  Country: None (occurrence: None)
  Receive Date: 20091027
  Receipt Date: 20091016
  Transmission Date: 20100525
  Serious: Yes (Other)
  Sender: FDA-Public Use
  Company Number: 238137K09USA

PATIENT
  Age: 35 Year
  Sex: Female

DRUGS (1)
  1. REBIF [Suspect]
     Indication: MULTIPLE SCLEROSIS
     Dosage: 44 MCG, 3 IN 1 WEEKS, SUBCUTANEOUS
     Route: 058
     Dates: start: 20090515, end: 20091001

REACTIONS (5)
  - DIPLOPIA [None]
  - DISEASE RECURRENCE [None]
  - EYE DISORDER [None]
  - OPTIC NEURITIS [None]
  - TREMOR [None]
